FAERS Safety Report 8602396 (Version 2)
Quarter: 2013Q3

REPORT INFORMATION
  Report Type: Spontaneous
  Country: US (occurrence: US)
  Receive Date: 20120607
  Receipt Date: 20130723
  Transmission Date: 20140515
  Serious: Yes (Disabling, Other)
  Sender: FDA-Public Use
  Company Number: US-ASTRAZENECA-2012SE34762

PATIENT
  Age: 34 Year
  Sex: Female

DRUGS (7)
  1. NEXIUM [Suspect]
     Dosage: TWO TIMES A DAY
     Route: 048
  2. NEXIUM [Suspect]
     Dosage: ONCE A DAY
     Route: 048
  3. PRILOSEC OTC [Suspect]
     Route: 048
  4. PEPTO BISMOL [Concomitant]
  5. ROLAIDS [Concomitant]
  6. FLUTICASONE [Concomitant]
     Indication: SINUS DISORDER
  7. ALEVE [Concomitant]
     Indication: PAIN

REACTIONS (14)
  - Malignant melanoma [Unknown]
  - Ligament injury [Unknown]
  - Ligament sprain [Unknown]
  - Diverticulitis [Unknown]
  - Gait disturbance [Unknown]
  - Osteoporosis [Unknown]
  - Arthritis [Unknown]
  - Intervertebral disc protrusion [Unknown]
  - Bone disorder [Unknown]
  - Asthma [Unknown]
  - Carpal tunnel syndrome [Unknown]
  - Hypertension [Unknown]
  - Ankle fracture [Unknown]
  - Fall [Unknown]
